FAERS Safety Report 7336164-X (Version None)
Quarter: 2011Q1

REPORT INFORMATION
  Report Type: 
  Country: None (occurrence: None)
  Receive Date: 20110307
  Receipt Date: 20110224
  Transmission Date: 20110831
  Serious: Yes (Other)
  Sender: FDA-Public Use
  Company Number: US-JNJFOC-20110300825

PATIENT
  Age: 64 Year
  Sex: Male
  Weight: 83.46 kg

DRUGS (4)
  1. BENADRYL ALLERGY DYE-FREE [Suspect]
     Indication: HYPERSENSITIVITY
     Route: 048
  2. TEMAZEPAM [Concomitant]
     Indication: SLEEP DISORDER THERAPY
     Route: 048
  3. XANAX [Concomitant]
     Indication: SLEEP DISORDER THERAPY
     Route: 048
  4. BENADRYL ALLERGY DYE-FREE [Suspect]
     Route: 048

REACTIONS (4)
  - PHOTOPSIA [None]
  - ERECTILE DYSFUNCTION [None]
  - CARDIOVASCULAR DISORDER [None]
  - ARTERIAL OCCLUSIVE DISEASE [None]
